FAERS Safety Report 8150002-7 (Version None)
Quarter: 2012Q1

REPORT INFORMATION
  Report Type: 
  Country: None (occurrence: None)
  Receive Date: 20120218
  Receipt Date: 20111222
  Transmission Date: 20120608
  Serious: No
  Sender: FDA-Public Use
  Company Number: US-ALLERGAN-1116721US

PATIENT
  Age: 40 Year
  Sex: Female

DRUGS (2)
  1. BOTOX COSMETIC [Suspect]
     Indication: SKIN WRINKLING
     Dosage: UNK
     Route: 030
     Dates: start: 20111216, end: 20111216
  2. JUVADERM [Suspect]
     Indication: PRODUCT USED FOR UNKNOWN INDICATION
     Dosage: UNK
     Dates: start: 20111216

REACTIONS (6)
  - FATIGUE [None]
  - EYE INJURY [None]
  - EYELID PTOSIS [None]
  - INFLUENZA LIKE ILLNESS [None]
  - NECK PAIN [None]
  - PYREXIA [None]
